FAERS Safety Report 5705346-2 (Version None)
Quarter: 2008Q2

REPORT INFORMATION
  Report Type: 
  Country: None (occurrence: None)
  Receive Date: 20080410
  Receipt Date: 20080325
  Transmission Date: 20081010
  Serious: Yes (Other)
  Sender: FDA-Public Use
  Company Number: 2005JP002256

PATIENT
  Age: 14 Month
  Sex: Female
  Weight: 15.3 kg

DRUGS (5)
  1. PROGRAF [Suspect]
     Indication: BONE MARROW TRANSPLANT
     Dosage: 0.002 MG/KG, CONTINUOUS, IV DRIP
     Route: 041
  2. BUSULFAN(BUSULFAN) PER ORAL NOS [Suspect]
     Indication: BONE MARROW TRANSPLANT
     Dosage: 2 MG/KG, ORAL; 1.40 MG/KG, /D ORAL
     Route: 048
  3. METHOTREXATE FORMULATION UNKNOWN [Concomitant]
  4. VP-16 (ETOPOSIDE) FORMULATION UNKNOWN [Concomitant]
  5. CYCLOPHOSPHAMIDE (CYCLOPHOSPHAMIDE) FORMULATION UNKNOWN [Concomitant]

REACTIONS (11)
  - ASCITES [None]
  - CYTOKINE RELEASE SYNDROME [None]
  - GENERALISED OEDEMA [None]
  - HEPATOMEGALY [None]
  - PLEURAL EFFUSION [None]
  - RESPIRATORY DISORDER [None]
  - STAPHYLOCOCCAL SEPSIS [None]
  - TACHYPNOEA [None]
  - VENOOCCLUSIVE LIVER DISEASE [None]
  - WEIGHT INCREASED [None]
  - WHITE BLOOD CELL COUNT DECREASED [None]
